FAERS Safety Report 6876030-7 (Version None)
Quarter: 2010Q3

REPORT INFORMATION
  Report Type: 
  Country: None (occurrence: None)
  Receive Date: 20100727
  Receipt Date: 20100716
  Transmission Date: 20110219
  Serious: Yes (Hospitalization, Other)
  Sender: FDA-Public Use
  Company Number: US-ASTRAZENECA-2010SE33347

PATIENT
  Age: 52 Year
  Sex: Female
  Weight: 62.1 kg

DRUGS (4)
  1. SEROQUEL [Suspect]
     Indication: BIPOLAR DISORDER
     Route: 048
     Dates: start: 20100715
  2. SEROQUEL [Suspect]
     Route: 048
     Dates: end: 20100714
  3. TEGRETOL [Concomitant]
  4. VALIUM [Concomitant]

REACTIONS (3)
  - INSOMNIA [None]
  - MENTAL DISORDER [None]
  - WEIGHT DECREASED [None]
